FAERS Safety Report 19735714 (Version 1)
Quarter: 2021Q3

REPORT INFORMATION
  Report Type: Spontaneous
  Country: FR (occurrence: FR)
  Receive Date: 20210823
  Receipt Date: 20210823
  Transmission Date: 20211014
  Serious: Yes (Hospitalization)
  Sender: FDA-Public Use
  Company Number: FR-PFIZER INC-202101038483

PATIENT
  Age: 69 Year
  Sex: Female
  Weight: 61 kg

DRUGS (9)
  1. CARBOPLATIN. [Suspect]
     Active Substance: CARBOPLATIN
     Indication: OVARIAN EPITHELIAL CANCER
     Dosage: UNK
     Route: 041
     Dates: start: 20210519, end: 20210519
  2. PACLITAXEL. [Suspect]
     Active Substance: PACLITAXEL
     Indication: OVARIAN EPITHELIAL CANCER
     Dosage: UNK
     Route: 041
     Dates: start: 20210519, end: 20210519
  3. HYDROCHLOROTHIAZIDE. [Concomitant]
     Active Substance: HYDROCHLOROTHIAZIDE
     Indication: HYPERTENSION
     Dosage: 25 MG, 1X/DAY
     Route: 048
  4. CANDESARTAN CILEXETIL. [Concomitant]
     Active Substance: CANDESARTAN CILEXETIL
     Indication: HYPERTENSION
     Dosage: 16 MG, 1X/DAY
     Route: 048
  5. VENLAFAXINE HCL [Suspect]
     Active Substance: VENLAFAXINE HYDROCHLORIDE
     Indication: DEPRESSION
     Dosage: 75 MG, 1X/DAY
     Route: 048
  6. CARBOPLATIN. [Suspect]
     Active Substance: CARBOPLATIN
     Dosage: UNK
     Route: 041
     Dates: start: 20210611, end: 20210611
  7. PACLITAXEL. [Suspect]
     Active Substance: PACLITAXEL
     Dosage: UNK
     Route: 041
     Dates: start: 20210611, end: 20210611
  8. AMLODIPINE [Concomitant]
     Active Substance: AMLODIPINE BESYLATE
     Indication: HYPERTENSION
     Dosage: 5 MG, 1X/DAY
     Route: 048
  9. LEVOTHYROX [Concomitant]
     Active Substance: LEVOTHYROXINE
     Indication: HYPOTHYROIDISM
     Dosage: 125 UG, 1X/DAY
     Route: 048

REACTIONS (1)
  - Posterior reversible encephalopathy syndrome [Recovered/Resolved with Sequelae]

NARRATIVE: CASE EVENT DATE: 20210614
